FAERS Safety Report 6671812-9 (Version None)
Quarter: 2010Q2

REPORT INFORMATION
  Report Type: 
  Country: None (occurrence: None)
  Receive Date: 20100407
  Receipt Date: 20100406
  Transmission Date: 20101027
  Serious: Yes (Hospitalization)
  Sender: FDA-Public Use
  Company Number: NL-ROCHE-694580

PATIENT
  Sex: Female

DRUGS (5)
  1. BEVACIZUMAB [Suspect]
     Route: 042
     Dates: start: 20090929, end: 20100209
  2. CAPECITABINE [Suspect]
     Route: 048
     Dates: start: 20090929, end: 20100202
  3. PACLITAXEL [Suspect]
     Route: 042
     Dates: start: 20090929, end: 20100202
  4. SYMBICORT [Concomitant]
     Dates: start: 20090806
  5. TEMAZEPAM [Concomitant]
     Dates: start: 20080301

REACTIONS (2)
  - DIZZINESS [None]
  - NAUSEA [None]
